FAERS Safety Report 5402773-8 (Version None)
Quarter: 2007Q3

REPORT INFORMATION
  Report Type: 
  Country: None (occurrence: None)
  Receive Date: 20070730
  Receipt Date: 20070718
  Transmission Date: 20080115
  Serious: Yes (Hospitalization)
  Sender: FDA-Public Use
  Company Number: 016296

PATIENT
  Age: 27 Year
  Sex: Male

DRUGS (2)
  1. ANTABUSE [Suspect]
     Indication: ALCOHOLISM
     Dosage: ORAL
     Route: 048
  2. ALCOHOL (ETANOL) [Suspect]
     Dosage: ORAL
     Route: 048

REACTIONS (10)
  - ALCOHOL INTOLERANCE [None]
  - DIZZINESS [None]
  - ELECTROCARDIOGRAM ST SEGMENT DEPRESSION [None]
  - FLUSHING [None]
  - HYPERHIDROSIS [None]
  - HYPOTENSION [None]
  - NO THERAPEUTIC RESPONSE [None]
  - PALPITATIONS [None]
  - SINUS TACHYCARDIA [None]
  - VOMITING [None]
